FAERS Safety Report 4504353-5 (Version None)
Quarter: 2004Q4

REPORT INFORMATION
  Report Type: 
  Country: None (occurrence: None)
  Receive Date: 20041115
  Receipt Date: 20041101
  Transmission Date: 20050328
  Serious: Yes (Other)
  Sender: FDA-Public Use
  Company Number: 2004081002

PATIENT
  Sex: Female

DRUGS (5)
  1. ZOLOFT [Suspect]
     Indication: DEPRESSION
  2. DONEPEZIL HCL [Suspect]
     Indication: ILL-DEFINED DISORDER
  3. GINGKO BILOBA (GINGKO BILOBA) [Concomitant]
  4. VITAMIN B (VITAMIN B) [Concomitant]
  5. ATORVASTATIN (ATORVASTATIN) [Concomitant]

REACTIONS (1)
  - CEREBROVASCULAR ACCIDENT [None]
